FAERS Safety Report 15456587 (Version 1)
Quarter: 2018Q3

REPORT INFORMATION
  Report Type: Spontaneous
  Country: US (occurrence: US)
  Receive Date: 20180928
  Receipt Date: 20180928
  Transmission Date: 20181010
  Serious: Yes (Hospitalization)
  Sender: FDA-Public Use
  Company Number: None

PATIENT
  Age: 48 Year
  Sex: Male

DRUGS (1)
  1. STELARA [Suspect]
     Active Substance: USTEKINUMAB
     Indication: CROHN^S DISEASE
     Dosage: ?          OTHER FREQUENCY:EVERY SIX WEEKS;?
     Route: 058
     Dates: start: 20160516

REACTIONS (3)
  - Diarrhoea [None]
  - Rotator cuff repair [None]
  - Crohn^s disease [None]

NARRATIVE: CASE EVENT DATE: 20180804
